FAERS Safety Report 6731297-0 (Version None)
Quarter: 2010Q2

REPORT INFORMATION
  Report Type: 
  Country: None (occurrence: None)
  Receive Date: 20100518
  Receipt Date: 20100511
  Transmission Date: 20101027
  Serious: Yes (Hospitalization, Disabling)
  Sender: FDA-Public Use
  Company Number: US-MERCK-0704USA05973

PATIENT
  Age: 47 Year
  Sex: Female

DRUGS (3)
  1. FOSAMAX [Suspect]
     Indication: OSTEOPOROSIS
     Route: 048
     Dates: start: 19980101, end: 20050801
  2. VICODIN [Concomitant]
     Indication: BACK PAIN
     Route: 065
     Dates: start: 19980101
  3. MORPHINE [Concomitant]
     Indication: BACK PAIN
     Route: 065
     Dates: start: 19980101

REACTIONS (16)
  - ABSCESS [None]
  - ADVERSE EVENT [None]
  - ANXIETY [None]
  - ARTHRALGIA [None]
  - ARTHROPATHY [None]
  - BACK DISORDER [None]
  - DEPRESSION [None]
  - GINGIVAL BLEEDING [None]
  - IMPAIRED HEALING [None]
  - INFECTION [None]
  - INSOMNIA [None]
  - JOINT RANGE OF MOTION DECREASED [None]
  - OEDEMA MOUTH [None]
  - ORAL PAIN [None]
  - SPINAL CORD DISORDER [None]
  - WOUND DRAINAGE [None]
